FAERS Safety Report 9467113 (Version 2)
Quarter: 2013Q3

REPORT INFORMATION
  Report Type: Spontaneous
  Country: US (occurrence: US)
  Receive Date: 20130820
  Receipt Date: 20130820
  Transmission Date: 20140515
  Serious: No
  Sender: FDA-Public Use
  Company Number: US-CUBIST PHARMACEUTICAL, INC.-2011US000106

PATIENT
  Age: 64 Year
  Sex: Female
  Weight: 57.15 kg

DRUGS (3)
  1. ENTEREG [Suspect]
     Indication: POSTOPERATIVE ILEUS
     Dosage: 12 MG, 1X
     Route: 048
     Dates: start: 20111111, end: 20111111
  2. PRILOSEC [Concomitant]
     Indication: GASTROOESOPHAGEAL REFLUX DISEASE
     Dosage: 20 MG, QD
     Route: 048
  3. PROPANOLOL [Concomitant]
     Indication: TREMOR
     Dosage: 60 MG, HS
     Route: 048

REACTIONS (1)
  - Abdominal pain [Recovered/Resolved]
